FAERS Safety Report 13962162 (Version 3)
Quarter: 2018Q4

REPORT INFORMATION
  Report Type: Spontaneous
  Country: FR (occurrence: FR)
  Receive Date: 20170912
  Receipt Date: 20181023
  Transmission Date: 20190204
  Serious: Yes (Other)
  Sender: FDA-Public Use
  Company Number: FR-MERCK KGAA-2025960

PATIENT
  Age: 52 Year
  Sex: Female

DRUGS (1)
  1. EUTHYROX [Suspect]
     Active Substance: LEVOTHYROXINE SODIUM
     Indication: HYPOTHYROIDISM
     Route: 048
     Dates: start: 201704

REACTIONS (28)
  - Tachycardia [Recovered/Resolved]
  - Muscle spasms [Not Recovered/Not Resolved]
  - Gait disturbance [None]
  - Balance disorder [None]
  - Loss of personal independence in daily activities [None]
  - Muscle atrophy [None]
  - Metrorrhagia [None]
  - Madarosis [None]
  - Depression [Recovered/Resolved]
  - Abdominal pain [None]
  - Myalgia [None]
  - Feeling abnormal [None]
  - Urticaria [None]
  - Diarrhoea [None]
  - Arrhythmia [Not Recovered/Not Resolved]
  - Fatigue [None]
  - Aphasia [None]
  - Dysstasia [None]
  - Loss of libido [None]
  - Blood thyroid stimulating hormone increased [None]
  - Weight decreased [Not Recovered/Not Resolved]
  - Insomnia [Recovered/Resolved]
  - Pain in extremity [None]
  - Amnesia [None]
  - Dyspepsia [None]
  - Arthralgia [None]
  - Feeling guilty [None]
  - Social avoidant behaviour [None]

NARRATIVE: CASE EVENT DATE: 2017
